FAERS Safety Report 6253787-X (Version None)
Quarter: 2009Q3

REPORT INFORMATION
  Report Type: 
  Country: None (occurrence: None)
  Receive Date: 20090702
  Receipt Date: 20090629
  Transmission Date: 20100115
  Serious: Yes (Hospitalization)
  Sender: FDA-Public Use
  Company Number: US-RB-017452-09

PATIENT
  Sex: Male

DRUGS (1)
  1. SUBOXONE [Suspect]
     Dosage: DOSAGE 12 - 16 MG DAILY
     Route: 060
     Dates: start: 20040101

REACTIONS (2)
  - APPENDICITIS PERFORATED [None]
  - CARDIOMYOPATHY [None]
